FAERS Safety Report 24369732 (Version 1)
Quarter: 2024Q3

REPORT INFORMATION
  Report Type: Report from Study
  Country: US (occurrence: US)
  Receive Date: 20240927
  Receipt Date: 20240927
  Transmission Date: 20241016
  Serious: No
  Sender: ROCHE
  Company Number: US-ROCHE-3495152

PATIENT
  Age: 42 Year
  Sex: Male

DRUGS (4)
  1. LUCENTIS [Suspect]
     Active Substance: RANIBIZUMAB
     Indication: Choroidal neovascularisation
     Dosage: (STRENGTH: 0.5MG/0.05 ML)
     Route: 050
  2. LUCENTIS [Suspect]
     Active Substance: RANIBIZUMAB
  3. LOSARTAN [Concomitant]
     Active Substance: LOSARTAN\LOSARTAN POTASSIUM
  4. OMEPRAZOLE [Concomitant]
     Active Substance: OMEPRAZOLE

REACTIONS (2)
  - Fatigue [Unknown]
  - Rhinorrhoea [Unknown]
